FAERS Safety Report 17855661 (Version 1)
Quarter: 2020Q2

REPORT INFORMATION
  Report Type: Spontaneous
  Country: ES (occurrence: ES)
  Receive Date: 20200603
  Receipt Date: 20200603
  Transmission Date: 20200714
  Serious: Yes (Hospitalization)
  Sender: FDA-Public Use
  Company Number: ES-TEVA-2020-ES-1243297

PATIENT
  Age: 79 Year
  Sex: Female

DRUGS (5)
  1. EZETIMIBA 10 MG [Concomitant]
     Dosage: 10 MG
     Dates: start: 20190816
  2. PARACETAMOL 1 GR [Concomitant]
     Active Substance: ACETAMINOPHEN
     Dosage: 1 GRAM
     Route: 048
     Dates: start: 20190810
  3. FLUOXETINA 20 MG [Concomitant]
     Active Substance: FLUOXETINE HYDROCHLORIDE
     Dosage: 20 MG
     Route: 048
  4. LEVODOPA 100/CARBIDOPA [Concomitant]
     Dosage: 1 DOSAGE FORMS
  5. ATORVASTATINA 80 MG 28 COMPRIMIDOS [Suspect]
     Active Substance: ATORVASTATIN
     Indication: HYPERCHOLESTEROLAEMIA
     Dosage: 80 MG
     Route: 048
     Dates: start: 20181004, end: 20190810

REACTIONS (1)
  - Hepatotoxicity [Recovered/Resolved]

NARRATIVE: CASE EVENT DATE: 201907
